FAERS Safety Report 7674021-X (Version None)
Quarter: 2011Q3

REPORT INFORMATION
  Report Type: 
  Country: None (occurrence: None)
  Receive Date: 20110810
  Receipt Date: 20110805
  Transmission Date: 20111222
  Serious: Yes (Hospitalization)
  Sender: FDA-Public Use
  Company Number: CA-BRISTOL-MYERS SQUIBB COMPANY-15818370

PATIENT
  Age: 60 Year
  Sex: Female

DRUGS (9)
  1. ORENCIA [Suspect]
     Indication: RHEUMATOID ARTHRITIS
     Dosage: LAST INFUSION ON 09MAY2011; NO OF INFUSION RECEIVED 9.
     Route: 042
     Dates: start: 20101025
  2. PREDNISONE [Concomitant]
  3. FOLIC ACID [Concomitant]
  4. RABEPRAZOLE SODIUM [Concomitant]
  5. VOLTAREN [Concomitant]
  6. CALCIUM CARBONATE [Concomitant]
  7. VITAMIN D [Concomitant]
  8. METHOTREXATE TABS [Concomitant]
  9. ALENDRONATE SODIUM [Concomitant]

REACTIONS (10)
  - EAR DISCOMFORT [None]
  - GASTROENTERITIS [None]
  - HYPOKALAEMIA [None]
  - ASTHENIA [None]
  - FATIGUE [None]
  - HYPOTENSION [None]
  - MUSCULOSKELETAL PAIN [None]
  - PNEUMONIA PNEUMOCOCCAL [None]
  - COUGH [None]
  - DEHYDRATION [None]
